FAERS Safety Report 23971605 (Version 1)
Quarter: 2024Q2

REPORT INFORMATION
  Report Type: Spontaneous
  Country: US (occurrence: US)
  Receive Date: 20240613
  Receipt Date: 20240613
  Transmission Date: 20240715
  Serious: No
  Sender: FDA-Public Use
  Company Number: US-PFIZER INC-202400189817

PATIENT
  Age: 12 Year
  Weight: 35.374 kg

DRUGS (1)
  1. GENOTROPIN [Suspect]
     Active Substance: SOMATROPIN
     Indication: Short stature
     Dosage: 1.4 MG
     Dates: start: 2024

REACTIONS (2)
  - Drug dose omission by device [Unknown]
  - Device breakage [Unknown]
